APPROVED DRUG PRODUCT: AMIODARONE HYDROCHLORIDE
Active Ingredient: AMIODARONE HYDROCHLORIDE
Strength: 400MG
Dosage Form/Route: TABLET;ORAL
Application: A076362 | Product #001
Applicant: TARO PHARMACEUTICAL INDUSTRIES LTD
Approved: Nov 29, 2002 | RLD: No | RS: No | Type: DISCN